FAERS Safety Report 9417662 (Version 1)
Quarter: 2013Q3

REPORT INFORMATION
  Report Type: Spontaneous
  Country: US (occurrence: US)
  Receive Date: 20130724
  Receipt Date: 20130724
  Transmission Date: 20140515
  Serious: Yes (Hospitalization)
  Sender: FDA-Public Use
  Company Number: US-ELI_LILLY_AND_COMPANY-US201307004644

PATIENT
  Age: 62 Year
  Sex: Male

DRUGS (6)
  1. ADCIRCA [Suspect]
     Indication: PULMONARY HYPERTENSION
     Dosage: 40 MG, QD
     Route: 065
     Dates: start: 20121220
  2. METFORMIN ER [Concomitant]
     Dosage: 500 MG, UNKNOWN
     Route: 065
  3. LANTUS [Concomitant]
     Dosage: UNK UNK, UNKNOWN (100U/ML)
     Route: 065
  4. GLIPIZIDE ER [Concomitant]
     Dosage: 10 MG, UNKNOWN
     Route: 065
  5. ADVAIR [Concomitant]
     Dosage: UNK, UNKNOWN (100/50)
     Route: 065
  6. ATENOLOL [Concomitant]
     Dosage: 10 MG, UNKNOWN
     Route: 065

REACTIONS (1)
  - Chronic obstructive pulmonary disease [Unknown]
